FAERS Safety Report 21389903 (Version 2)
Quarter: 2025Q3

REPORT INFORMATION
  Report Type: Spontaneous
  Country: EU (occurrence: EU)
  Receive Date: 20220929
  Receipt Date: 20250816
  Transmission Date: 20251021
  Serious: Yes (Other)
  Sender: AUROBINDO
  Company Number: EU-aspen-JPL2020FR005450AA

PATIENT
  Age: 24 Year
  Sex: Male

DRUGS (12)
  1. BISOPROLOL [Suspect]
     Active Substance: BISOPROLOL
     Indication: Product used for unknown indication
     Dosage: 25 MILLIGRAM, ONCE A DAY
     Route: 065
  2. ACETAMINOPHEN [Interacting]
     Active Substance: ACETAMINOPHEN
     Indication: Product used for unknown indication
     Dosage: 21 GRAM, ONCE A DAY
     Route: 065
  3. FLECAINIDE [Interacting]
     Active Substance: FLECAINIDE
     Indication: Product used for unknown indication
     Dosage: 4 GRAM, ONCE A DAY
     Route: 065
  4. VALIUM [Suspect]
     Active Substance: DIAZEPAM
     Indication: Product used for unknown indication
     Dosage: 10 MILLIGRAM, ONCE A DAY
     Route: 065
  5. CYMBALTA [Suspect]
     Active Substance: DULOXETINE HYDROCHLORIDE
     Indication: Product used for unknown indication
     Dosage: 60 MILLIGRAM, ONCE A DAY
     Route: 065
  6. ACETAMINOPHEN\BELLADONNA LEAF\CAFFEINE\OPIUM [Suspect]
     Active Substance: ACETAMINOPHEN\BELLADONNA LEAF\CAFFEINE\OPIUM
     Indication: Product used for unknown indication
     Route: 065
  7. SUFENTANIL CITRATE [Suspect]
     Active Substance: SUFENTANIL CITRATE
     Indication: Sedation
     Route: 065
  8. ALCOHOL [Suspect]
     Active Substance: ALCOHOL
     Indication: Product used for unknown indication
     Route: 065
  9. FLUMAZENIL [Suspect]
     Active Substance: FLUMAZENIL
     Indication: Product used for unknown indication
     Route: 065
  10. NOREPINEPHRINE BITARTRATE [Suspect]
     Active Substance: NOREPINEPHRINE BITARTRATE
     Indication: Product used for unknown indication
     Dosage: 0.5 MILLIGRAM, EVERY HOUR
     Route: 065
  11. MIDAZOLAM [Suspect]
     Active Substance: MIDAZOLAM
     Indication: Sedation
     Route: 065
  12. VOGALENE [Suspect]
     Active Substance: METOPIMAZINE
     Indication: Product used for unknown indication
     Route: 065

REACTIONS (12)
  - Tremor [Unknown]
  - Bundle branch block right [Unknown]
  - Muscle spasticity [Unknown]
  - Agitation [Unknown]
  - Electrocardiogram QT prolonged [Unknown]
  - Hypotension [Unknown]
  - Bradycardia [Unknown]
  - Respiratory acidosis [Unknown]
  - Coma [Unknown]
  - Overdose [Unknown]
  - Toxicity to various agents [Unknown]
  - Drug interaction [Unknown]
